FAERS Safety Report 25268385 (Version 1)
Quarter: 2025Q2

REPORT INFORMATION
  Report Type: Spontaneous
  Country: US (occurrence: US)
  Receive Date: 20250505
  Receipt Date: 20250505
  Transmission Date: 20250716
  Serious: Yes (Other)
  Sender: ICU MEDICAL, INC.
  Company Number: US-ICUMEDICALP-2025USA-ICU0000010

PATIENT
  Age: 1 Year
  Sex: Female

DRUGS (3)
  1. SODIUM CHLORIDE [Suspect]
     Active Substance: SODIUM CHLORIDE
     Indication: Product used for unknown indication
     Route: 042
  2. LEVOTHYROXINE [Concomitant]
     Active Substance: LEVOTHYROXINE
     Indication: Hypothyroidism
     Dosage: 25 MCG
     Route: 048
  3. METRELEPTIN [Concomitant]
     Active Substance: METRELEPTIN
     Indication: Leptin receptor deficiency
     Dosage: 11 UNITS
     Route: 058

REACTIONS (1)
  - Anaphylactic reaction [Recovered/Resolved]

NARRATIVE: CASE EVENT DATE: 20250419
